FAERS Safety Report 20969115 (Version 1)
Quarter: 2022Q2

REPORT INFORMATION
  Report Type: Report from Study
  Country: US (occurrence: US)
  Receive Date: 20220616
  Receipt Date: 20220616
  Transmission Date: 20220721
  Serious: Yes (Other)
  Sender: FDA-Public Use
  Company Number: US-BIOGEN-2021BI01002077

PATIENT
  Age: 37 Year
  Sex: Female
  Weight: 85.2 kg

DRUGS (5)
  1. TECFIDERA [Suspect]
     Active Substance: DIMETHYL FUMARATE
     Indication: Multiple sclerosis
     Route: 048
     Dates: start: 20201118, end: 20210211
  2. TECFIDERA [Suspect]
     Active Substance: DIMETHYL FUMARATE
     Route: 065
     Dates: start: 20170814
  3. TECFIDERA [Suspect]
     Active Substance: DIMETHYL FUMARATE
     Route: 065
     Dates: end: 202102
  4. PRENATE DHA [Concomitant]
     Active Substance: .ALPHA.-TOCOPHEROL, DL-\ASCORBIC ACID\CALCIUM CARBONATE\CHOLECALCIFEROL\CYANOCOBALAMIN\DOCONEXENT\FE
     Indication: Product used for unknown indication
     Route: 048
  5. ELDERBERRY ZINC VIT C [Concomitant]
     Indication: Product used for unknown indication
     Dosage: BY MUCUS MEMBRANE ROUTE
     Route: 065

REACTIONS (3)
  - Pre-eclampsia [Unknown]
  - Gestational diabetes [Unknown]
  - Maternal exposure during pregnancy [Recovered/Resolved]

NARRATIVE: CASE EVENT DATE: 20210802
